FAERS Safety Report 8878774 (Version 5)
Quarter: 2012Q4

REPORT INFORMATION
  Report Type: 
  Country: AR (occurrence: AR)
  Receive Date: 20121026
  Receipt Date: 20121226
  Transmission Date: 20130627
  Serious: Yes (Other)
  Sender: FDA-Public Use
  Company Number: PHHY2012AR096065

PATIENT
  Age: 61 Year
  Sex: Female

DRUGS (1)
  1. LAPENAX [Suspect]
     Dosage: 150 mg daily
     Route: 048
     Dates: end: 20121107

REACTIONS (4)
  - Infection [Unknown]
  - Bronchitis [Unknown]
  - Neutropenia [Recovered/Resolved]
  - Leukopenia [Recovered/Resolved]
